FAERS Safety Report 17436651 (Version 3)
Quarter: 2020Q1

REPORT INFORMATION
  Report Type: Spontaneous
  Country: JP (occurrence: JP)
  Receive Date: 20200219
  Receipt Date: 20200325
  Transmission Date: 20200409
  Serious: Yes (Hospitalization)
  Sender: FDA-Public Use
  Company Number: JP-EISAI MEDICAL RESEARCH-EC-2020-070083

PATIENT
  Age: 42 Year
  Sex: Female

DRUGS (4)
  1. DEPAS [Concomitant]
     Indication: ANXIETY DISORDER
     Dosage: DOSE AND FREQUENCY NOT PROVIDED
  2. FYCOMPA [Suspect]
     Active Substance: PERAMPANEL
     Indication: SIMPLE PARTIAL SEIZURES
     Route: 048
     Dates: start: 20191210, end: 20191225
  3. E KEPPRA [Suspect]
     Active Substance: LEVETIRACETAM
     Indication: PRODUCT USED FOR UNKNOWN INDICATION
     Dates: end: 20200127
  4. FYCOMPA [Suspect]
     Active Substance: PERAMPANEL
     Route: 048
     Dates: start: 20191226, end: 20200127

REACTIONS (2)
  - Anxiety disorder [Unknown]
  - Aggression [Recovered/Resolved]

NARRATIVE: CASE EVENT DATE: 20191219
